FAERS Safety Report 15356549 (Version 1)
Quarter: 2018Q3

REPORT INFORMATION
  Report Type: Spontaneous
  Country: US (occurrence: US)
  Receive Date: 20180830
  Receipt Date: 20180830
  Transmission Date: 20181010
  Serious: Yes (Hospitalization)
  Sender: FDA-Public Use
  Company Number: None

PATIENT
  Age: 4 Year
  Sex: Male

DRUGS (11)
  1. NEUPOGEN [Suspect]
     Active Substance: FILGRASTIM
     Indication: ADRENAL GLAND CANCER
     Route: 058
     Dates: start: 20180327
  2. GABAPENTIN. [Concomitant]
     Active Substance: GABAPENTIN
  3. RULOX [Concomitant]
  4. NEUPOGEN [Suspect]
     Active Substance: FILGRASTIM
     Indication: ADRENAL GLAND CANCER
     Route: 058
  5. PENICILLN [Concomitant]
  6. PHENAZOPYRID [Concomitant]
  7. POLYETH GLYC POW [Concomitant]
  8. CETIRIZINE [Concomitant]
     Active Substance: CETIRIZINE HYDROCHLORIDE
  9. HYDROMORPHON [Concomitant]
     Active Substance: HYDROMORPHONE
  10. ONDANSETRON [Concomitant]
     Active Substance: ONDANSETRON
  11. VORICONAZOLE. [Concomitant]
     Active Substance: VORICONAZOLE

REACTIONS (1)
  - Bone pain [None]
